FAERS Safety Report 19983187 (Version 1)
Quarter: 2021Q4

REPORT INFORMATION
  Report Type: Spontaneous
  Country: PL (occurrence: PL)
  Receive Date: 20211021
  Receipt Date: 20211021
  Transmission Date: 20220303
  Serious: Yes (Other)
  Sender: FDA-Public Use
  Company Number: PL-UCBSA-2021031135

PATIENT
  Age: 52 Year
  Sex: Male

DRUGS (9)
  1. LEVETIRACETAM [Suspect]
     Active Substance: LEVETIRACETAM
     Indication: Product used for unknown indication
     Dosage: 1000 MILLIGRAM DAILY
  2. LEVETIRACETAM [Suspect]
     Active Substance: LEVETIRACETAM
     Dosage: 2000 MILLIGRAM PER DAY
  3. DIAZEPAM [Concomitant]
     Active Substance: DIAZEPAM
     Indication: Epilepsy
     Dosage: 34 MILLIGRAM
  4. DIAZEPAM [Concomitant]
     Active Substance: DIAZEPAM
     Dosage: 3 MILLIGRAM PER DAY
  5. DIAZEPAM [Concomitant]
     Active Substance: DIAZEPAM
     Dosage: 1-2 MG PER DAY
  6. DIAZEPAM [Concomitant]
     Active Substance: DIAZEPAM
     Dosage: 1 MILIGRAM PER WEEK
  7. DIAZEPAM [Concomitant]
     Active Substance: DIAZEPAM
     Dosage: 40 MILLIGRAM
  8. GABAPENTIN [Concomitant]
     Active Substance: GABAPENTIN
     Indication: Epilepsy
     Dosage: 2400 MILLIGRAMS DAILY
  9. CARBAMAZEPINE [Concomitant]
     Active Substance: CARBAMAZEPINE
     Indication: Epilepsy
     Dosage: 1200 MILLIGRAM DAILY

REACTIONS (4)
  - Seizure [Unknown]
  - Altered state of consciousness [Unknown]
  - Myoclonus [Unknown]
  - Aura [Unknown]
